FAERS Safety Report 15017024 (Version 1)
Quarter: 2018Q2

REPORT INFORMATION
  Report Type: Spontaneous
  Country: US (occurrence: US)
  Receive Date: 20180531
  Receipt Date: 20180531
  Transmission Date: 20180711
  Serious: Yes (Hospitalization)
  Sender: FDA-Public Use
  Company Number: None

PATIENT
  Age: 68 Year
  Sex: Male
  Weight: 81 kg

DRUGS (3)
  1. NEOMYCIN. [Suspect]
     Active Substance: NEOMYCIN
     Indication: COLORECTAL CANCER
     Dosage: ?          QUANTITY:1 DF DOSAGE FORM;?
     Route: 042
     Dates: start: 19950601, end: 19950601
  2. IV FLUIDS [Concomitant]
     Active Substance: UNSPECIFIED INGREDIENT
  3. COLOSTOMY BAG [Concomitant]

REACTIONS (2)
  - Renal failure [None]
  - Adverse drug reaction [None]

NARRATIVE: CASE EVENT DATE: 19950601
